FAERS Safety Report 15051481 (Version 1)
Quarter: 2018Q2

REPORT INFORMATION
  Report Type: Spontaneous
  Country: US (occurrence: US)
  Receive Date: 20180622
  Receipt Date: 20180622
  Transmission Date: 20180711
  Serious: Yes (Hospitalization, Other)
  Sender: FDA-Public Use
  Company Number: US-MYLANLABS-2018M1042967

PATIENT
  Age: 65 Year
  Sex: Male

DRUGS (5)
  1. VALGANCICLOVIR. [Concomitant]
     Active Substance: VALGANCICLOVIR
     Indication: DISSEMINATED CYTOMEGALOVIRAL INFECTION
     Dosage: MAINTENANCE THERAPY
     Route: 065
  2. CASPOFUNGIN [Suspect]
     Active Substance: CASPOFUNGIN
     Indication: EVIDENCE BASED TREATMENT
     Route: 042
  3. DEXAMETHASONE. [Suspect]
     Active Substance: DEXAMETHASONE
     Indication: HISTIOCYTOSIS HAEMATOPHAGIC
     Dosage: RECEIVING STEROID TAPER
     Route: 065
  4. POSACONAZOLE [Concomitant]
     Active Substance: POSACONAZOLE
     Indication: EVIDENCE BASED TREATMENT
     Route: 048
  5. ETOPOSIDE. [Suspect]
     Active Substance: ETOPOSIDE
     Indication: HISTIOCYTOSIS HAEMATOPHAGIC
     Dosage: 10 CYCLES
     Route: 065

REACTIONS (12)
  - Cerebral infarction [Unknown]
  - Endocarditis [Unknown]
  - Hemiparesis [Unknown]
  - Vasculitis cerebral [Unknown]
  - Delirium [Unknown]
  - Cardiomyopathy [Unknown]
  - Intracranial aneurysm [Unknown]
  - Subarachnoid haemorrhage [Unknown]
  - Cerebral artery stenosis [Unknown]
  - Drug-induced liver injury [Unknown]
  - Fungal endocarditis [Unknown]
  - Bronchopulmonary aspergillosis [Recovering/Resolving]
